FAERS Safety Report 11245482 (Version 2)
Quarter: 2020Q4

REPORT INFORMATION
  Report Type: Other
  Country: DK (occurrence: DK)
  Receive Date: 20150707
  Receipt Date: 20201202
  Transmission Date: 20210113
  Serious: Yes (Hospitalization, Other)
  Sender: FDA-Public Use
  Company Number: DK-ASTELLAS-2015US023647

PATIENT
  Age: 64 Year
  Sex: Male

DRUGS (8)
  1. ATORVASTATIN [Concomitant]
     Active Substance: ATORVASTATIN
     Indication: HYPERCHOLESTEROLAEMIA
     Route: 065
  2. CORODIL [DIPYRIDAMOLE] [Concomitant]
     Indication: HYPERTENSION
     Dosage: UNK UNK, UNKNOWN FREQ.
     Route: 065
  3. XTANDI [Suspect]
     Active Substance: ENZALUTAMIDE
     Indication: PROSTATE CANCER METASTATIC
     Dosage: 160 MG, ONCE DAILY (STYRKE: 40 MG)
     Route: 048
     Dates: start: 20150331
  4. PLAVIX [Concomitant]
     Active Substance: CLOPIDOGREL BISULFATE
     Indication: CARDIOVASCULAR EVENT PROPHYLAXIS
     Dosage: UNK UNK, UNKNOWN FREQ.
     Route: 065
  5. ENALAPRIL MALEATE. [Concomitant]
     Active Substance: ENALAPRIL MALEATE
     Indication: HYPERTENSION
     Dosage: UNK UNK, UNKNOWN FREQ.
     Route: 065
  6. DIGOXIN. [Concomitant]
     Active Substance: DIGOXIN
     Indication: CARDIAC FAILURE
     Dosage: UNK UNK, UNKNOWN FREQ.
     Route: 065
  7. MAREVAN [Suspect]
     Active Substance: WARFARIN SODIUM
     Indication: CARDIOVASCULAR EVENT PROPHYLAXIS
     Dosage: UNK UNK, UNKNOWN FREQ.(STYRKE: 2.5 MG.)
     Route: 048
     Dates: end: 20150614
  8. METOPROLOL TARTRATE. [Concomitant]
     Active Substance: METOPROLOL TARTRATE
     Indication: CARDIAC FAILURE
     Dosage: UNK UNK, UNKNOWN FREQ.
     Route: 065

REACTIONS (10)
  - Jaundice [Not Recovered/Not Resolved]
  - Blood alkaline phosphatase increased [Unknown]
  - Coagulopathy [Recovering/Resolving]
  - Aspartate aminotransferase increased [Unknown]
  - Alanine aminotransferase increased [Unknown]
  - Congestive hepatopathy [Not Recovered/Not Resolved]
  - International normalised ratio increased [Unknown]
  - Cholestasis [Unknown]
  - Chromaturia [Unknown]
  - Blood bilirubin increased [Unknown]

NARRATIVE: CASE EVENT DATE: 2015
